FAERS Safety Report 9893743 (Version 1)
Quarter: 2014Q1

REPORT INFORMATION
  Report Type: Spontaneous
  Country: US (occurrence: US)
  Receive Date: 20140213
  Receipt Date: 20140213
  Transmission Date: 20141002
  Serious: No
  Sender: FDA-Public Use
  Company Number: US-BAYER-2014-017807

PATIENT
  Age: 32 Year
  Sex: Female

DRUGS (1)
  1. FINACEA [Suspect]
     Indication: ROSACEA
     Dosage: ONCE DAILY AT NIGHT
     Dates: start: 20131007, end: 201311

REACTIONS (1)
  - Exfoliative rash [Not Recovered/Not Resolved]
